FAERS Safety Report 23381023 (Version 1)
Quarter: 2024Q1

REPORT INFORMATION
  Report Type: Other
  Country: CA (occurrence: None)
  Receive Date: 20240109
  Receipt Date: 20240109
  Transmission Date: 20240409
  Serious: Yes (Death)
  Sender: FDA-Public Use
  Company Number: CA-ROCHE-3484885

PATIENT
  Age: 74 Year
  Sex: Female

DRUGS (1)
  1. ENSPRYNG [Suspect]
     Active Substance: SATRALIZUMAB-MWGE
     Indication: Neuromyelitis optica spectrum disorder
     Dosage: 120 MG AT WEEKS 0, 2, AND 4 THEN EVERY 4 WEEKS?ON 28/DEC/2023, SHE RECEIVED MOST RECENT DOSE OF SATR
     Route: 058
     Dates: start: 20231214

REACTIONS (6)
  - Pyrexia [Fatal]
  - Shock [Fatal]
  - Blood pressure decreased [Fatal]
  - Ill-defined disorder [Fatal]
  - Renal impairment [Fatal]
  - Dyspnoea [Fatal]

NARRATIVE: CASE EVENT DATE: 20231229
